FAERS Safety Report 21507608 (Version 1)
Quarter: 2022Q4

REPORT INFORMATION
  Report Type: Spontaneous
  Country: IN (occurrence: IN)
  Receive Date: 20221026
  Receipt Date: 20221026
  Transmission Date: 20230112
  Serious: Yes (Other)
  Sender: FDA-Public Use
  Company Number: IN-NOVARTISPH-NVSC2022IN238484

PATIENT
  Age: 27 Year
  Sex: Male

DRUGS (1)
  1. OXCARBAZEPINE [Suspect]
     Active Substance: OXCARBAZEPINE
     Indication: Bipolar I disorder
     Dosage: 1200 MG
     Route: 065

REACTIONS (3)
  - Hyponatraemia [Unknown]
  - Therapy partial responder [Unknown]
  - Product use in unapproved indication [Unknown]
